FAERS Safety Report 5898012-4 (Version None)
Quarter: 2008Q3

REPORT INFORMATION
  Report Type: 
  Country: None (occurrence: None)
  Receive Date: 20080924
  Receipt Date: 20080924
  Transmission Date: 20090109
  Serious: No
  Sender: FDA-Public Use
  Company Number: None

PATIENT
  Age: 63 Year
  Sex: Male

DRUGS (1)
  1. VANCOMYCIN HYDROCHLORIDE [Suspect]
     Dosage: 1000 MG BID IV
     Route: 042
     Dates: start: 20080826, end: 20080826

REACTIONS (6)
  - ANAPHYLACTIC REACTION [None]
  - CHEST PAIN [None]
  - ELECTROCARDIOGRAM ST-T SEGMENT ELEVATION [None]
  - INFUSION RELATED REACTION [None]
  - RED MAN SYNDROME [None]
  - THROMBOSIS IN DEVICE [None]
